FAERS Safety Report 5888101-2 (Version None)
Quarter: 2008Q3

REPORT INFORMATION
  Report Type: 
  Country: None (occurrence: None)
  Receive Date: 20080818
  Receipt Date: 20070611
  Transmission Date: 20090109
  Serious: Yes (Hospitalization)
  Sender: FDA-Public Use
  Company Number: 20073786

PATIENT
  Age: 15 Year
  Sex: Male

DRUGS (1)
  1. LIORESAL [Suspect]
     Indication: MUSCLE SPASTICITY
     Dosage: 1500MCG, DAILY, INTRATHECAL
     Route: 037

REACTIONS (4)
  - AGITATION [None]
  - CONVULSION [None]
  - DRUG INEFFECTIVE [None]
  - HYPERTONIA [None]
